FAERS Safety Report 10204778 (Version 1)
Quarter: 2014Q2

REPORT INFORMATION
  Report Type: Spontaneous
  Country: BR (occurrence: BR)
  Receive Date: 20140529
  Receipt Date: 20140529
  Transmission Date: 20141212
  Serious: Yes (Other)
  Sender: FDA-Public Use
  Company Number: BR-ELI_LILLY_AND_COMPANY-BR201405007870

PATIENT
  Age: 55 Year
  Sex: Male
  Weight: 100 kg

DRUGS (4)
  1. AXIRON [Suspect]
     Indication: HYPOGONADISM
     Dosage: 60 MG, QD
     Route: 061
     Dates: start: 201403
  2. GLIFAGE [Concomitant]
     Indication: GLUCOSE TOLERANCE IMPAIRED
     Dosage: 1 MG, UNKNOWN
     Route: 065
  3. ROSUVASTATIN [Concomitant]
     Indication: BLOOD CHOLESTEROL
     Dosage: 1.5 MG, UNKNOWN
     Route: 065
  4. INDAPAMIDA [Concomitant]
     Indication: HYPERTENSION
     Dosage: 1.5 MG, UNKNOWN
     Route: 065

REACTIONS (6)
  - Neurofibroma [Unknown]
  - Muscle rigidity [Unknown]
  - Blood glucose decreased [Unknown]
  - Blood testosterone increased [Unknown]
  - Hypertrichosis [Unknown]
  - Mood altered [Unknown]
